FAERS Safety Report 13277925 (Version 1)
Quarter: 2017Q1

REPORT INFORMATION
  Report Type: Spontaneous
  Country: GB (occurrence: GB)
  Receive Date: 20170228
  Receipt Date: 20170228
  Transmission Date: 20170428
  Serious: Yes (Other)
  Sender: FDA-Public Use
  Company Number: GB-B. BRAUN MEDICAL INC.-1063685

PATIENT
  Age: 78 Year

DRUGS (4)
  1. METARAMINOL [Suspect]
     Active Substance: METARAMINOL
     Route: 042
  2. DEXTROSE INJECTIONS USP 0264-7510-00 0264-7510-20 [Suspect]
     Active Substance: DEXTROSE
     Indication: RESUSCITATION
     Route: 042
  3. EPINEPHRINE. [Suspect]
     Active Substance: EPINEPHRINE
     Route: 042
  4. CALCIUM GLUCONATE. [Suspect]
     Active Substance: CALCIUM GLUCONATE
     Route: 042

REACTIONS (2)
  - Catheter site extravasation [Unknown]
  - Limb injury [Unknown]

NARRATIVE: CASE EVENT DATE: 20160314
